FAERS Safety Report 11647252 (Version 1)
Quarter: 2015Q4

REPORT INFORMATION
  Report Type: Report from Study
  Country: US (occurrence: US)
  Receive Date: 20151021
  Receipt Date: 20151021
  Transmission Date: 20160304
  Serious: Yes (Other)
  Sender: FDA-Public Use
  Company Number: US-AMGEN-USASL2015109365

PATIENT
  Sex: Female

DRUGS (1)
  1. ENBREL [Suspect]
     Active Substance: ETANERCEPT
     Indication: PRODUCT USED FOR UNKNOWN INDICATION
     Dosage: UNK
     Route: 065
     Dates: start: 2005, end: 2013

REACTIONS (6)
  - Basal cell carcinoma [Unknown]
  - Musculoskeletal disorder [Unknown]
  - Adverse drug reaction [Unknown]
  - Pain in extremity [Unknown]
  - Memory impairment [Unknown]
  - Peripheral swelling [Unknown]
